FAERS Safety Report 7512450-5 (Version None)
Quarter: 2011Q2

REPORT INFORMATION
  Report Type: 
  Country: None (occurrence: None)
  Receive Date: 20110531
  Receipt Date: 20110511
  Transmission Date: 20111010
  Serious: No
  Sender: FDA-Public Use
  Company Number: US-B.I. PHARMACEUTICALS,INC./RIDGEFIELD-2011-BP-08842BP

PATIENT
  Sex: Male

DRUGS (14)
  1. PRADAXA [Suspect]
     Indication: THROMBOSIS
     Dosage: 300 MG
  2. SPIRIVA [Concomitant]
  3. ARICEPT [Concomitant]
  4. SYNTHROID [Concomitant]
  5. DIGOXIN [Concomitant]
  6. ALDACTONE [Concomitant]
  7. DIOVAN [Concomitant]
  8. ADVAIR DISK [Concomitant]
  9. VERAMYST [Concomitant]
  10. PRADAXA [Suspect]
     Indication: ATRIAL FIBRILLATION
     Dosage: 150 MG
     Route: 048
     Dates: start: 20110414
  11. OMEPRAZOLE [Concomitant]
  12. FOSAMAX [Concomitant]
  13. FUROSEMIDE [Concomitant]
  14. CHOLESTYRAMINE [Concomitant]

REACTIONS (3)
  - ERYTHEMA [None]
  - PETECHIAE [None]
  - SKIN DISCOLOURATION [None]
